FAERS Safety Report 6874894-4 (Version None)
Quarter: 2010Q2

REPORT INFORMATION
  Report Type: 
  Country: None (occurrence: None)
  Receive Date: 20100610
  Receipt Date: 20100428
  Transmission Date: 20101027
  Serious: No
  Sender: FDA-Public Use
  Company Number: 2010SP024841

PATIENT
  Age: 30 Year
  Sex: Female

DRUGS (8)
  1. SAPHRIS [Suspect]
     Indication: BIPOLAR DISORDER
     Dosage: 10 MG;HS;SL
     Route: 060
     Dates: start: 20100402
  2. GABAPENTIN [Concomitant]
  3. CLONAZEPAM [Concomitant]
  4. LITHIUM CARBONATE ER (LITHIUM CARBONATE) [Concomitant]
  5. LEVOTHYROXINE SODIUM [Concomitant]
  6. VYVANSE [Concomitant]
  7. ADDERALL 10 [Concomitant]
  8. GABAPENTIN [Concomitant]

REACTIONS (2)
  - INAPPROPRIATE SCHEDULE OF DRUG ADMINISTRATION [None]
  - ORAL MUCOSA EROSION [None]
